FAERS Safety Report 5079254-7 (Version None)
Quarter: 2006Q3

REPORT INFORMATION
  Report Type: 
  Country: None (occurrence: None)
  Receive Date: 20060808
  Receipt Date: 20060721
  Transmission Date: 20061208
  Serious: Yes (Death, Congenital Anomaly, Other)
  Sender: FDA-Public Use
  Company Number: DSA_28526_2006

PATIENT
  Sex: Female

DRUGS (7)
  1. TEMESTA [Suspect]
     Dosage: DF TRAN-P
     Route: 064
     Dates: start: 20030201, end: 20030414
  2. ADEPAL [Suspect]
     Dosage: 1 TAB Q DAY TRAN-P
     Route: 064
     Dates: end: 20030131
  3. ALPRAZOLAM [Suspect]
     Dosage: DF TRAN-P
     Route: 064
     Dates: end: 20030131
  4. CATAPRES [Suspect]
     Dosage: DF  TRAN-P
     Route: 064
     Dates: start: 20030201, end: 20030414
  5. FOSINOPRIL SODIUM [Suspect]
     Dosage: DF TRAN-P
     Route: 064
     Dates: end: 20030131
  6. HYDROCHLOROTHIAZIDE [Suspect]
     Dosage: DF  TRAN-P
     Route: 064
     Dates: end: 20030131
  7. LEVOTHYROXINE SODIUM [Suspect]
     Dosage: DF TRAN-P
     Route: 064
     Dates: end: 20030414

REACTIONS (6)
  - ABORTION INDUCED [None]
  - AMNIOTIC FLUID VOLUME DECREASED [None]
  - CONGENITAL CYSTIC KIDNEY DISEASE [None]
  - DRUG EXPOSURE DURING PREGNANCY [None]
  - POTTER'S SYNDROME [None]
  - PULMONARY HYPOPLASIA [None]
